FAERS Safety Report 7301093-4 (Version None)
Quarter: 2011Q1

REPORT INFORMATION
  Report Type: 
  Country: None (occurrence: None)
  Receive Date: 20110111
  Receipt Date: 20100804
  Transmission Date: 20110831
  Serious: Yes (Hospitalization)
  Sender: FDA-Public Use
  Company Number: IDA-00406

PATIENT
  Age: 1 Year
  Sex: Female

DRUGS (1)
  1. PROPRANOLOL [Suspect]
     Indication: HAEMANGIOMA
     Dosage: DAILY DOSE: 5 MG/KG DAILY/1 MG/KG DAILY/1.25 MG/KG DAILY

REACTIONS (1)
  - HYPOGLYCAEMIA [None]
